FAERS Safety Report 7322791-2 (Version None)
Quarter: 2011Q1

REPORT INFORMATION
  Report Type: 
  Country: None (occurrence: None)
  Receive Date: 20110301
  Receipt Date: 20110218
  Transmission Date: 20110831
  Serious: No
  Sender: FDA-Public Use
  Company Number: US-JNJFOC-20110206757

PATIENT
  Sex: Male
  Weight: 83.46 kg

DRUGS (7)
  1. DIAZEPAM [Concomitant]
     Route: 048
  2. CYMBALTA [Concomitant]
     Indication: PANIC ATTACK
     Route: 048
  3. DURAGESIC-100 [Suspect]
     Indication: BACK PAIN
     Route: 062
  4. DURAGESIC-100 [Suspect]
     Indication: PAIN IN EXTREMITY
     Route: 062
  5. GEODON [Concomitant]
     Indication: BIPOLAR DISORDER
     Route: 048
  6. HYDROCODONE BITARTRATE + ACETAMINOPHEN [Concomitant]
     Indication: BREAKTHROUGH PAIN
     Dosage: 10MG/325MG AS NEEDED
     Route: 048
  7. PROZAC [Concomitant]
     Indication: PANIC ATTACK
     Route: 048

REACTIONS (4)
  - PRODUCT ADHESION ISSUE [None]
  - ABASIA [None]
  - WRONG TECHNIQUE IN DRUG USAGE PROCESS [None]
  - PAIN IN EXTREMITY [None]
